FAERS Safety Report 6173272-3 (Version None)
Quarter: 2009Q2

REPORT INFORMATION
  Report Type: 
  Country: None (occurrence: None)
  Receive Date: 20090428
  Receipt Date: 20090421
  Transmission Date: 20091009
  Serious: Yes (Life-Threatening, Disabling, Other)
  Sender: FDA-Public Use
  Company Number: 2007JP000178

PATIENT
  Age: 62 Year
  Sex: Male
  Weight: 60 kg

DRUGS (13)
  1. FUNGUARD(MICAFUNGIN) INJECTION [Suspect]
     Indication: PNEUMONIA
     Dosage: 50 MG, UID/QD, IV DRIP; 150 MG, UID/QD, IV DRIP
     Route: 041
     Dates: start: 20061203, end: 20061210
  2. FUNGUARD(MICAFUNGIN) INJECTION [Suspect]
     Indication: PNEUMONIA
     Dosage: 50 MG, UID/QD, IV DRIP; 150 MG, UID/QD, IV DRIP
     Route: 041
     Dates: start: 20061214, end: 20061214
  3. MAGMITT (MAGNESIUM OXIDE) TABLET [Concomitant]
  4. LOXOPROFEN (LOXOPROFEN) TABLET [Concomitant]
  5. CIBENOL (CIBENZOLINE SUCCINATE) TABLET [Concomitant]
  6. GLAKAY (MENATETRENONE) CAPSULE [Concomitant]
  7. VANCOMYCIN [Concomitant]
  8. CIPROXAN (CIPROFLOXACIN HYDROCHLORIDE) INJECTION [Concomitant]
  9. MEROPEN (MEROPENEM) INJECTION [Concomitant]
  10. TOBRAMYCIN SULFATE [Concomitant]
  11. NEUTROGIN (LENOGRASTIM) INJECTION [Concomitant]
  12. MAXIPIME [Concomitant]
  13. VENOGLOBULIN (IMMUNOGLOBULIN HUMAN NORMAL) FORMULATION UNKNOWN [Concomitant]

REACTIONS (7)
  - ANAEMIA [None]
  - CARDIAC FAILURE [None]
  - DISSEMINATED INTRAVASCULAR COAGULATION [None]
  - DRUG HYPERSENSITIVITY [None]
  - HAEMOLYSIS [None]
  - PYREXIA [None]
  - RENAL FAILURE ACUTE [None]
